FAERS Safety Report 6311076-9 (Version None)
Quarter: 2009Q3

REPORT INFORMATION
  Report Type: 
  Country: None (occurrence: None)
  Receive Date: 20090817
  Receipt Date: 20061206
  Transmission Date: 20100115
  Serious: Yes (Other)
  Sender: FDA-Public Use
  Company Number: US-PFIZER INC-2006151010

PATIENT
  Sex: Female
  Weight: 60.3 kg

DRUGS (5)
  1. SUTENT [Suspect]
     Indication: RENAL CELL CARCINOMA
     Dosage: 50 MG, 1X/DAY
     Route: 048
     Dates: start: 20060914
  2. PREDNISONE [Concomitant]
  3. PLAVIX [Concomitant]
  4. PREVACID [Concomitant]
  5. SYNTHROID [Concomitant]

REACTIONS (4)
  - BLOOD CHOLESTEROL INCREASED [None]
  - BLOOD TRIGLYCERIDES INCREASED [None]
  - EYE DISORDER [None]
  - EYELID MARGIN CRUSTING [None]
